FAERS Safety Report 6318778-9 (Version None)
Quarter: 2009Q3

REPORT INFORMATION
  Report Type: 
  Country: None (occurrence: None)
  Receive Date: 20090819
  Receipt Date: 20090811
  Transmission Date: 20100115
  Serious: Yes (Hospitalization)
  Sender: FDA-Public Use
  Company Number: 230621J08CAN

PATIENT
  Age: 56 Year
  Sex: Male

DRUGS (2)
  1. REBIF [Suspect]
     Indication: MULTIPLE SCLEROSIS
     Dosage: 44 MCG, 3 IN 1 WEEKS; 44 MCG, 3 IN 1 WEEKS
     Dates: start: 20000117, end: 20080601
  2. REBIF [Suspect]
     Indication: MULTIPLE SCLEROSIS
     Dosage: 44 MCG, 3 IN 1 WEEKS; 44 MCG, 3 IN 1 WEEKS
     Dates: start: 20080728

REACTIONS (4)
  - CHOLELITHIASIS [None]
  - CYSTITIS [None]
  - MULTIPLE SCLEROSIS RELAPSE [None]
  - URINARY INCONTINENCE [None]
